FAERS Safety Report 9897328 (Version 2)
Quarter: 2014Q1

REPORT INFORMATION
  Report Type: Spontaneous
  Country: DE (occurrence: DE)
  Receive Date: 20140214
  Receipt Date: 20140214
  Transmission Date: 20141002
  Serious: Yes (Hospitalization, Other)
  Sender: FDA-Public Use
  Company Number: DE-RANBAXY-2014R1-77179

PATIENT
  Age: 35 Year
  Sex: Female

DRUGS (5)
  1. TRIAMCINOLONE [Suspect]
     Indication: LUMBAR RADICULOPATHY
     Dosage: 20 MG, 1/WEEK
     Route: 065
     Dates: start: 201206
  2. RITONAVIR [Interacting]
     Indication: HIV INFECTION
     Dosage: 100
     Route: 065
     Dates: start: 200507
  3. EMTRICITABINE/TENOFOVIR [Concomitant]
     Indication: HIV INFECTION
     Dosage: UNK, QD
     Route: 065
  4. SAQUINAVIR [Concomitant]
     Indication: HIV INFECTION
     Route: 065
  5. BUCAINE [Concomitant]
     Indication: LUMBAR RADICULOPATHY
     Dosage: 3 ML, 1/WEEK
     Route: 065

REACTIONS (4)
  - Cushing^s syndrome [Unknown]
  - Adrenal suppression [Unknown]
  - Drug interaction [Unknown]
  - Herpes zoster [Unknown]
